FAERS Safety Report 7725620-8 (Version None)
Quarter: 2011Q3

REPORT INFORMATION
  Report Type: 
  Country: None (occurrence: None)
  Receive Date: 20110830
  Receipt Date: 20110816
  Transmission Date: 20111222
  Serious: Yes (Other)
  Sender: FDA-Public Use
  Company Number: 2011-00951

PATIENT
  Age: 80 Year
  Sex: Female

DRUGS (4)
  1. ATENOLOL [Concomitant]
  2. SIMVASTATIN [Suspect]
     Indication: HYPERCHOLESTEROLAEMIA
     Dosage: 80 MG (80 MG,1 IN 1 D),PER ORAL ; 40 MG (1 IN 1 D),PER ORAL
     Route: 048
     Dates: start: 20110301, end: 20110601
  3. SIMVASTATIN [Suspect]
     Indication: HYPERCHOLESTEROLAEMIA
     Dosage: 80 MG (80 MG,1 IN 1 D),PER ORAL ; 40 MG (1 IN 1 D),PER ORAL
     Route: 048
     Dates: start: 20110601
  4. AMLODIPINE [Concomitant]

REACTIONS (3)
  - BLOOD CREATININE INCREASED [None]
  - MUSCULOSKELETAL STIFFNESS [None]
  - BLOOD POTASSIUM INCREASED [None]
